FAERS Safety Report 12838307 (Version 1)
Quarter: 2016Q4

REPORT INFORMATION
  Report Type: Spontaneous
  Country: US (occurrence: US)
  Receive Date: 20161012
  Receipt Date: 20161012
  Transmission Date: 20170207
  Serious: No
  Sender: FDA-Public Use
  Company Number: US-MYLANLABS-2016M1037901

PATIENT
  Sex: Female

DRUGS (1)
  1. ESTRADIOL. [Suspect]
     Active Substance: ESTRADIOL
     Dosage: 1 DF, BIWEEKLY CHANGE 2X/WEEK
     Route: 062

REACTIONS (2)
  - Hypersensitivity [Recovered/Resolved]
  - Application site erythema [Recovered/Resolved]
